FAERS Safety Report 7184597-7 (Version None)
Quarter: 2010Q4

REPORT INFORMATION
  Report Type: 
  Country: None (occurrence: None)
  Receive Date: 20101222
  Receipt Date: 20101210
  Transmission Date: 20110411
  Serious: Yes (Hospitalization)
  Sender: FDA-Public Use
  Company Number: US-ELI_LILLY_AND_COMPANY-US201011001530

PATIENT
  Sex: Female

DRUGS (17)
  1. GEMCITABINE HCL [Suspect]
     Indication: PANCREATIC CARCINOMA
     Dosage: 1000 MG/M2, OTHER
     Dates: start: 20100818
  2. GEMCITABINE HCL [Suspect]
     Dosage: 1760 MG, OTHER
     Dates: start: 20101027
  3. PACLITAXEL [Suspect]
     Indication: PANCREATIC CARCINOMA
     Dosage: 125 MG/M2, WEEKLY (1/W)
     Route: 065
     Dates: start: 20100818
  4. ATENOLOL [Concomitant]
     Indication: PALPITATIONS
     Route: 048
     Dates: start: 19900101
  5. DARVOCET [Concomitant]
     Indication: PAIN
     Route: 048
     Dates: start: 20100601
  6. ATIVAN [Concomitant]
     Indication: ANXIETY
     Route: 048
     Dates: start: 20040101
  7. PROMETHAZINE [Concomitant]
     Indication: NAUSEA
     Route: 048
     Dates: start: 20100701
  8. MYLANTA [Concomitant]
     Indication: DYSPEPSIA
     Route: 048
     Dates: start: 20090101
  9. ZOFRAN [Concomitant]
     Indication: NAUSEA
     Route: 048
     Dates: start: 20100820
  10. TAGAMET [Concomitant]
     Indication: DYSPEPSIA
     Route: 048
     Dates: start: 20100901
  11. NORMAL SALINE [Concomitant]
     Indication: DEHYDRATION
     Route: 042
     Dates: start: 20101025, end: 20101025
  12. NORMAL SALINE [Concomitant]
     Dates: start: 20101029, end: 20101029
  13. NEUPOGEN [Concomitant]
     Indication: NEUTROPENIA
     Route: 058
     Dates: start: 20101022, end: 20101022
  14. NEUPOGEN [Concomitant]
     Route: 058
     Dates: start: 20101025, end: 20101025
  15. NEUPOGEN [Concomitant]
     Route: 058
     Dates: start: 20101029, end: 20101029
  16. SCOPOLAMINE [Concomitant]
     Indication: NAUSEA
  17. ALUMINUM HYDROXIDE [Concomitant]

REACTIONS (1)
  - DEHYDRATION [None]
